FAERS Safety Report 7469449-7 (Version None)
Quarter: 2011Q2

REPORT INFORMATION
  Report Type: 
  Country: None (occurrence: None)
  Receive Date: 20110429
  Receipt Date: 20110415
  Transmission Date: 20111010
  Serious: Yes (Hospitalization)
  Sender: FDA-Public Use
  Company Number: VAL_00549_2011

PATIENT
  Sex: Female

DRUGS (7)
  1. EUTHYROX [Concomitant]
  2. ARAVA [Concomitant]
  3. RAMIPRIL [Concomitant]
  4. CALCITRIOL [Suspect]
     Indication: OSTEOPOROSIS
     Dosage: (10 MG)
  5. ETANERCEPT (ETANERCEPT) [Suspect]
     Indication: PSORIASIS
     Dosage: (50 MG 2X/WEEK), (50 MG 1X/WEEK), (50 MG 2X/WEEK)
     Dates: start: 20091028
  6. ETANERCEPT (ETANERCEPT) [Suspect]
     Indication: PSORIASIS
     Dosage: (50 MG 2X/WEEK), (50 MG 1X/WEEK), (50 MG 2X/WEEK)
     Dates: start: 20101004
  7. ETANERCEPT (ETANERCEPT) [Suspect]
     Indication: PSORIASIS
     Dosage: (50 MG 2X/WEEK), (50 MG 1X/WEEK), (50 MG 2X/WEEK)
     Dates: start: 20080417, end: 20091001

REACTIONS (5)
  - NEPHROGENIC ANAEMIA [None]
  - HYPERCALCAEMIA [None]
  - OVERDOSE [None]
  - RENAL FAILURE ACUTE [None]
  - WEIGHT DECREASED [None]
